FAERS Safety Report 5303509-1 (Version None)
Quarter: 2007Q2

REPORT INFORMATION
  Report Type: 
  Country: None (occurrence: None)
  Receive Date: 20070420
  Receipt Date: 20070415
  Transmission Date: 20071010
  Serious: Yes (Other)
  Sender: FDA-Public Use
  Company Number: IL-PFIZER INC-2007030291

PATIENT
  Age: 80 Year
  Sex: Female

DRUGS (1)
  1. DETRUSITOL SR [Suspect]

REACTIONS (1)
  - UROSEPSIS [None]
